FAERS Safety Report 18380116 (Version 3)
Quarter: 2021Q2

REPORT INFORMATION
  Report Type: Report from Study
  Country: None (occurrence: CA)
  Receive Date: 20201014
  Receipt Date: 20210405
  Transmission Date: 20210717
  Serious: Yes (Hospitalization, Other)
  Sender: FDA-Public Use
  Company Number: CA-ABBVIE-20K-028-3603981-00

PATIENT
  Age: 54 Year
  Sex: Male

DRUGS (4)
  1. HUMIRA [Suspect]
     Active Substance: ADALIMUMAB
     Indication: RHEUMATOID ARTHRITIS
     Route: 058
     Dates: start: 20101209, end: 2020
  2. CELEBREX [Suspect]
     Active Substance: CELECOXIB
     Route: 065
     Dates: start: 202103
  3. CELEBREX [Suspect]
     Active Substance: CELECOXIB
     Indication: PRODUCT USED FOR UNKNOWN INDICATION
     Route: 065
     Dates: end: 2021
  4. HUMIRA [Suspect]
     Active Substance: ADALIMUMAB
     Route: 058
     Dates: start: 20210203, end: 20210303

REACTIONS (23)
  - Cervical spinal stenosis [Not Recovered/Not Resolved]
  - Procedural complication [Unknown]
  - Joint stiffness [Unknown]
  - Hypertension [Unknown]
  - Stenosis [Not Recovered/Not Resolved]
  - Unevaluable event [Not Recovered/Not Resolved]
  - Fine motor skill dysfunction [Not Recovered/Not Resolved]
  - Rheumatoid arthritis [Not Recovered/Not Resolved]
  - Internal haemorrhage [Unknown]
  - Foot amputation [Not Recovered/Not Resolved]
  - Gait disturbance [Not Recovered/Not Resolved]
  - Joint destruction [Not Recovered/Not Resolved]
  - Joint dislocation [Not Recovered/Not Resolved]
  - Hypoaesthesia [Not Recovered/Not Resolved]
  - Musculoskeletal disorder [Not Recovered/Not Resolved]
  - Post-traumatic neck syndrome [Unknown]
  - Accident [Unknown]
  - Contusion [Not Recovered/Not Resolved]
  - Concussion [Unknown]
  - Balance disorder [Not Recovered/Not Resolved]
  - Upper limb fracture [Unknown]
  - Pain [Unknown]
  - Fall [Not Recovered/Not Resolved]

NARRATIVE: CASE EVENT DATE: 2020
